FAERS Safety Report 8202696-5 (Version None)
Quarter: 2012Q1

REPORT INFORMATION
  Report Type: 
  Country: None (occurrence: None)
  Receive Date: 20120312
  Receipt Date: 20120201
  Transmission Date: 20120608
  Serious: Yes (Other)
  Sender: FDA-Public Use
  Company Number: JP-SHIRE-SPV1-2008-01156

PATIENT

DRUGS (4)
  1. IDURSULFASE [Suspect]
     Indication: MUCOPOLYSACCHARIDOSIS II
     Dosage: 6 MG, 1X/WEEK
     Route: 041
     Dates: start: 20071129
  2. ACETAMINOPHEN [Concomitant]
     Indication: PREMEDICATION
     Dosage: 150 MG, UNKNOWN
     Route: 048
     Dates: start: 20071227
  3. LATANOPROST [Concomitant]
     Indication: MUCOPOLYSACCHARIDOSIS
     Dosage: UNK, 1X/DAY:QD
     Route: 031
     Dates: start: 20080214
  4. HYDROXYZINE PAMOATE [Concomitant]
     Indication: PREMEDICATION
     Dosage: 2 ML, UNKNOWN
     Route: 048
     Dates: start: 20071227

REACTIONS (2)
  - HEPATIC FUNCTION ABNORMAL [None]
  - CYTOMEGALOVIRUS HEPATITIS [None]
